FAERS Safety Report 9010354 (Version 1)
Quarter: 2013Q1

REPORT INFORMATION
  Report Type: Spontaneous
  Country: US (occurrence: US)
  Receive Date: 20130109
  Receipt Date: 20130109
  Transmission Date: 20140127
  Serious: Yes (Hospitalization)
  Sender: FDA-Public Use
  Company Number: US-BAYER-2013-002274

PATIENT
  Age: 21 Year
  Sex: Female
  Weight: 61.22 kg

DRUGS (9)
  1. YAZ [Suspect]
  2. YASMIN [Suspect]
     Indication: DYSMENORRHOEA
  3. YASMIN [Suspect]
     Indication: CONTRACEPTION
  4. YASMIN [Suspect]
     Indication: MENSTRUATION IRREGULAR
  5. CIPRO [Concomitant]
  6. NAPROSYN [Concomitant]
  7. FLEXERIL [Concomitant]
  8. CLARINEX [DESLORATADINE] [Concomitant]
     Dosage: 5 MG, UNK
     Route: 048
     Dates: start: 20070914
  9. CYCLOBENZAPRINE [Concomitant]
     Dosage: 10 MG, UNK
     Route: 048
     Dates: start: 20071018

REACTIONS (1)
  - Pulmonary embolism [None]
